FAERS Safety Report 19010674 (Version 1)
Quarter: 2021Q1

REPORT INFORMATION
  Report Type: Report from Study
  Country: BR (occurrence: BR)
  Receive Date: 20210316
  Receipt Date: 20210316
  Transmission Date: 20210420
  Serious: Yes (Death, Hospitalization)
  Sender: FDA-Public Use
  Company Number: NVSC2021BR057539

PATIENT
  Age: 60 Year
  Sex: Male

DRUGS (1)
  1. VOTRIENT [Suspect]
     Active Substance: PAZOPANIB HYDROCHLORIDE
     Indication: RENAL CELL CARCINOMA
     Dosage: 2 DF, QD (800 MG, 2 TABLETS A DAY)
     Route: 065
     Dates: start: 202011, end: 20210308

REACTIONS (2)
  - Death [Fatal]
  - Metastases to kidney [Unknown]

NARRATIVE: CASE EVENT DATE: 20210309
